FAERS Safety Report 12393126 (Version 2)
Quarter: 2016Q2

REPORT INFORMATION
  Report Type: Spontaneous
  Country: US (occurrence: US)
  Receive Date: 20160523
  Receipt Date: 20160620
  Transmission Date: 20160815
  Serious: No
  Sender: FDA-Public Use
  Company Number: US-PFIZER INC-2016262479

PATIENT
  Age: 60 Year
  Sex: Male
  Weight: 79 kg

DRUGS (1)
  1. VIAGRA [Suspect]
     Active Substance: SILDENAFIL CITRATE
     Indication: SEXUAL DYSFUNCTION
     Dosage: TOOK 1 PILL, THEN 2 MONTHS LATER TOOK ANOTHER ONE BY MOUTH
     Route: 048

REACTIONS (3)
  - Wrong technique in product usage process [Unknown]
  - Pre-existing condition improved [Unknown]
  - Therapeutic response unexpected [Unknown]
